FAERS Safety Report 9162067 (Version 2)
Quarter: 2013Q2

REPORT INFORMATION
  Report Type: Spontaneous
  Country: US (occurrence: US)
  Receive Date: 20130314
  Receipt Date: 20130405
  Transmission Date: 20140414
  Serious: Yes (Other)
  Sender: FDA-Public Use
  Company Number: US-SANOFI-AVENTIS-2013SA024274

PATIENT
  Age: 87 Year
  Sex: Male

DRUGS (2)
  1. LANTUS SOLOSTAR [Suspect]
     Indication: TYPE 2 DIABETES MELLITUS
     Dosage: PRODUCT START DATE:- 5 YEARS DOSE:24 UNIT(S)
     Route: 051
     Dates: start: 201211
  2. SOLOSTAR [Suspect]
     Indication: TYPE 2 DIABETES MELLITUS
     Dosage: PRODUCT START DATE:- 5 YEARS

REACTIONS (3)
  - Macular degeneration [Unknown]
  - Blindness unilateral [Unknown]
  - Blood glucose increased [Recovered/Resolved]
